FAERS Safety Report 21311727 (Version 1)
Quarter: 2022Q3

REPORT INFORMATION
  Report Type: Spontaneous
  Country: US (occurrence: None)
  Receive Date: 20220909
  Receipt Date: 20220909
  Transmission Date: 20221026
  Serious: No
  Sender: FDA-Public Use
  Company Number: US-ARIS GLOBAL-202203-0374

PATIENT
  Sex: Male

DRUGS (8)
  1. OXERVATE [Suspect]
     Active Substance: CENEGERMIN-BKBJ
     Indication: Neurotrophic keratopathy
     Route: 047
     Dates: start: 20220221
  2. ALLOPURINOL [Concomitant]
     Active Substance: ALLOPURINOL
  3. FINASTERIDE [Concomitant]
     Active Substance: FINASTERIDE
  4. LATANOPROST [Concomitant]
     Active Substance: LATANOPROST
  5. TADALAFIL [Concomitant]
     Active Substance: TADALAFIL
  6. TIMOLOL MALEATE [Concomitant]
     Active Substance: TIMOLOL MALEATE
  7. MELOXICAM [Concomitant]
     Active Substance: MELOXICAM
  8. BRIMONIDINE TARTRATE [Concomitant]
     Active Substance: BRIMONIDINE TARTRATE

REACTIONS (1)
  - Eye pain [Not Recovered/Not Resolved]
